FAERS Safety Report 13444079 (Version 1)
Quarter: 2017Q2

REPORT INFORMATION
  Report Type: Spontaneous
  Country: FR (occurrence: FR)
  Receive Date: 20170414
  Receipt Date: 20170414
  Transmission Date: 20170830
  Serious: Yes (Death, Hospitalization)
  Sender: FDA-Public Use
  Company Number: FR-SA-2017SA065963

PATIENT
  Age: 52 Year
  Sex: Female

DRUGS (1)
  1. TAXOTERE [Suspect]
     Active Substance: DOCETAXEL
     Indication: BREAST CANCER
     Route: 042
     Dates: start: 19991013, end: 19991013

REACTIONS (2)
  - Jaundice [Fatal]
  - Oliguria [Fatal]

NARRATIVE: CASE EVENT DATE: 19991017
